FAERS Safety Report 4412669-6 (Version None)
Quarter: 2004Q2

REPORT INFORMATION
  Report Type: 
  Country: None (occurrence: None)
  Receive Date: 20040630
  Receipt Date: 20040315
  Transmission Date: 20050107
  Serious: No
  Sender: FDA-Public Use
  Company Number: 04P-163-0253398-00

PATIENT
  Age: 77 Year
  Sex: Female

DRUGS (10)
  1. HUMIRA [Suspect]
     Indication: RHEUMATOID ARTHRITIS
     Dosage: 40 MG, 1 IN 2 WK, SUBCUTANEOUS
     Route: 058
     Dates: start: 20040101
  2. PREDNISONE [Concomitant]
  3. CALCIUM CITRATE [Concomitant]
  4. BILACOR [Concomitant]
  5. FOLIC ACID [Concomitant]
  6. METHOTREXATE SODIUM [Concomitant]
  7. RANITIDINE [Concomitant]
  8. TIMOLOL MALEATE [Concomitant]
  9. TRIMIPRAMINE [Concomitant]
  10. PAIN PATCH [Concomitant]

REACTIONS (2)
  - ARTHRALGIA [None]
  - JOINT STIFFNESS [None]
